FAERS Safety Report 12082307 (Version 4)
Quarter: 2016Q3

REPORT INFORMATION
  Report Type: Spontaneous
  Country: FR (occurrence: FR)
  Receive Date: 20160217
  Receipt Date: 20160929
  Transmission Date: 20161109
  Serious: Yes (Hospitalization)
  Sender: FDA-Public Use
  Company Number: FR-ASTRAZENECA-2016SE15187

PATIENT
  Age: 531 Month
  Sex: Female

DRUGS (9)
  1. EFFEXOR [Suspect]
     Active Substance: VENLAFAXINE HYDROCHLORIDE
     Dosage: 1.0DF UNKNOWN
     Route: 065
  2. VALDOXAN [Suspect]
     Active Substance: AGOMELATINE
     Route: 048
     Dates: start: 2013
  3. ATARAX [Suspect]
     Active Substance: HYDROXYZINE\HYDROXYZINE HYDROCHLORIDE
     Route: 065
     Dates: start: 2013
  4. VALIUM [Suspect]
     Active Substance: DIAZEPAM
     Route: 065
     Dates: start: 2013
  5. NOCTAMIDE [Suspect]
     Active Substance: LORMETAZEPAM
     Route: 065
  6. LOXAPAC [Suspect]
     Active Substance: LOXAPINE SUCCINATE
     Route: 065
  7. XEROQUEL [Suspect]
     Active Substance: QUETIAPINE FUMARATE
     Route: 048
     Dates: start: 2013
  8. STILNOX [Suspect]
     Active Substance: ZOLPIDEM TARTRATE
     Route: 065
  9. EFFEXOR [Suspect]
     Active Substance: VENLAFAXINE HYDROCHLORIDE
     Dosage: 2.0DF UNKNOWN
     Route: 065
     Dates: start: 2013

REACTIONS (5)
  - Hepatic steatosis [Unknown]
  - Gamma-glutamyltransferase increased [Recovered/Resolved with Sequelae]
  - Cholestasis [Recovered/Resolved with Sequelae]
  - Cholelithiasis [Unknown]
  - Liver disorder [Unknown]

NARRATIVE: CASE EVENT DATE: 201510
